FAERS Safety Report 10262799 (Version 2)
Quarter: 2014Q2

REPORT INFORMATION
  Report Type: Report from Study
  Country: US (occurrence: US)
  Receive Date: 20140626
  Receipt Date: 20140626
  Transmission Date: 20141212
  Serious: Yes (Other)
  Sender: FDA-Public Use
  Company Number: US-MYLANLABS-2013S1017099

PATIENT
  Age: 69 Year
  Sex: Female
  Weight: 122.93 kg

DRUGS (16)
  1. CLOZAPINE TABLETS [Suspect]
     Indication: BIPOLAR I DISORDER
     Route: 048
     Dates: start: 20130702, end: 20130718
  2. ASPIRIN [Concomitant]
     Dates: start: 20100901
  3. CARBOXYMETHYLCELLULOSE SODIUM [Concomitant]
     Route: 047
     Dates: start: 20110428
  4. CHOLECALCIFEROL [Concomitant]
     Dates: start: 20110402
  5. CLONAZEPAM [Concomitant]
     Route: 048
     Dates: start: 20110402
  6. DIVALPROEX [Concomitant]
     Dates: start: 20130619
  7. DONEPEZIL [Concomitant]
     Dates: start: 20130513
  8. GLIPIZIDE [Concomitant]
     Route: 048
     Dates: start: 20130513
  9. KETOCONAZOLE [Concomitant]
     Dosage: CREAM
     Dates: start: 20120723
  10. LEVOTHYROXINE [Concomitant]
     Dates: start: 20121004
  11. LOSARTAN [Concomitant]
     Dates: start: 20130221
  12. LURASIDONE [Concomitant]
     Dates: start: 20130221
  13. PILOCARPINE [Concomitant]
     Route: 047
     Dates: start: 20110307
  14. PREGABALIN [Concomitant]
     Route: 048
     Dates: start: 20110307
  15. PROPRANOLOL [Concomitant]
     Dates: start: 20120216
  16. LIPOIC ACID [Concomitant]
     Dates: start: 20121220

REACTIONS (1)
  - Granulocytopenia [Recovered/Resolved]
